FAERS Safety Report 4823804-X (Version None)
Quarter: 2005Q4

REPORT INFORMATION
  Report Type: 
  Country: None (occurrence: None)
  Receive Date: 20051107
  Receipt Date: 20051024
  Transmission Date: 20060501
  Serious: Yes (Death, Hospitalization, Other)
  Sender: FDA-Public Use
  Company Number: 2005103475

PATIENT
  Age: 84 Year
  Sex: Female
  Weight: 50 kg

DRUGS (4)
  1. CELEBREX [Suspect]
     Indication: PROCTITIS
     Dosage: (200 MG), ORAL
     Route: 048
  2. ASACOL [Concomitant]
  3. ANTI-ASTHMATICS (ANTI-ASTHMATICS) [Concomitant]
  4. ALL OTHER THERAPEUTIC PRODUCTS (ALL OTHER THERAPEUTIC PRODUCTS) [Concomitant]

REACTIONS (13)
  - ARTERIOSCLEROSIS [None]
  - CIRCULATORY COLLAPSE [None]
  - CONTUSION [None]
  - CORONARY ARTERY THROMBOSIS [None]
  - DEPRESSED LEVEL OF CONSCIOUSNESS [None]
  - MYOCARDIAL INFARCTION [None]
  - MYOCARDIAL RUPTURE [None]
  - OEDEMA PERIPHERAL [None]
  - PERICARDIAL HAEMORRHAGE [None]
  - PULMONARY CONGESTION [None]
  - RESPIRATORY DISORDER [None]
  - SUDDEN DEATH [None]
  - THROMBOSIS [None]
